FAERS Safety Report 18988040 (Version 1)
Quarter: 2021Q1

REPORT INFORMATION
  Report Type: Spontaneous
  Country: US (occurrence: US)
  Receive Date: 20210309
  Receipt Date: 20210309
  Transmission Date: 20210420
  Serious: No
  Sender: FDA-Public Use
  Company Number: NVSC2021US051076

PATIENT
  Age: 40 Year
  Sex: Male

DRUGS (1)
  1. COSENTYX [Suspect]
     Active Substance: SECUKINUMAB
     Indication: PSORIASIS
     Dosage: QMO
     Route: 003
     Dates: start: 20170302

REACTIONS (2)
  - Psoriasis [Unknown]
  - Product use issue [Unknown]

NARRATIVE: CASE EVENT DATE: 20210202
